FAERS Safety Report 8786118 (Version 2)
Quarter: 2014Q3

REPORT INFORMATION
  Report Type: Report from Study
  Country: US (occurrence: US)
  Receive Date: 20120914
  Receipt Date: 20140819
  Transmission Date: 20150326
  Serious: Yes (Death, Hospitalization, Other)
  Sender: FDA-Public Use
  Company Number: US-ROCHE-1111296

PATIENT
  Sex: Female
  Weight: 52.6 kg

DRUGS (9)
  1. FOLINIC ACID [Concomitant]
     Active Substance: LEUCOVORIN
  2. CETUXIMAB [Concomitant]
     Active Substance: CETUXIMAB
  3. IRINOTECAN [Concomitant]
     Active Substance: IRINOTECAN
  4. FLUOROURACIL. [Concomitant]
     Active Substance: FLUOROURACIL
  5. TARCEVA [Suspect]
     Active Substance: ERLOTINIB HYDROCHLORIDE
     Indication: MALIGNANT NEOPLASM OF AMPULLA OF VATER
     Route: 048
  6. XELODA [Suspect]
     Active Substance: CAPECITABINE
     Indication: PRODUCT USED FOR UNKNOWN INDICATION
     Route: 048
  7. OXALIPLATIN. [Concomitant]
     Active Substance: OXALIPLATIN
  8. TARCEVA [Suspect]
     Active Substance: ERLOTINIB HYDROCHLORIDE
     Indication: PANCREATIC CARCINOMA
  9. AVASTIN [Suspect]
     Active Substance: BEVACIZUMAB
     Indication: MALIGNANT NEOPLASM OF AMPULLA OF VATER
     Route: 042

REACTIONS (11)
  - Anaemia [Unknown]
  - Pelvic mass [Unknown]
  - Metastases to liver [Unknown]
  - Duodenal obstruction [Unknown]
  - Off label use [Unknown]
  - Disease progression [Unknown]
  - Death [Fatal]
  - Streptococcal sepsis [Unknown]
  - Drug intolerance [Unknown]
  - Rash [Unknown]
  - Wound infection [Unknown]
